FAERS Safety Report 8438691-0 (Version None)
Quarter: 2012Q2

REPORT INFORMATION
  Report Type: 
  Country: None (occurrence: None)
  Receive Date: 20120611
  Receipt Date: 20120611
  Transmission Date: 20120825
  Serious: Yes (Other)
  Sender: FDA-Public Use
  Company Number: None

PATIENT
  Age: 71 Year
  Sex: Male

DRUGS (2)
  1. AZASAN [Suspect]
     Indication: ULCER
     Dosage: 75MG ONCE A DAY PO
     Route: 048
     Dates: start: 20120107, end: 20120127
  2. AZACAL [Concomitant]

REACTIONS (11)
  - JOINT SWELLING [None]
  - ALOPECIA [None]
  - FATIGUE [None]
  - STOMATITIS [None]
  - ABDOMINAL DISTENSION [None]
  - CHILLS [None]
  - ASTHENIA [None]
  - PYREXIA [None]
  - HYPOAESTHESIA [None]
  - OEDEMA PERIPHERAL [None]
  - MUSCLE ATROPHY [None]
